FAERS Safety Report 25165853 (Version 1)
Quarter: 2025Q2

REPORT INFORMATION
  Report Type: Spontaneous
  Country: DE (occurrence: DE)
  Receive Date: 20250407
  Receipt Date: 20250407
  Transmission Date: 20250716
  Serious: Yes (Hospitalization)
  Sender: NOVARTIS
  Company Number: DE-002147023-NVSC2025DE018687

PATIENT
  Age: 42 Year
  Sex: Female

DRUGS (4)
  1. FINGOLIMOD [Suspect]
     Active Substance: FINGOLIMOD
     Indication: Relapsing-remitting multiple sclerosis
     Route: 048
     Dates: start: 20200703
  2. FINGOLIMOD [Suspect]
     Active Substance: FINGOLIMOD
     Route: 048
     Dates: start: 20221213
  3. FINGOLIMOD [Suspect]
     Active Substance: FINGOLIMOD
     Route: 065
     Dates: start: 20250114
  4. CHOLECALCIFEROL [Concomitant]
     Active Substance: CHOLECALCIFEROL
     Indication: Vitamin D deficiency
     Dosage: 20000 IU, QW
     Route: 048
     Dates: start: 20200703

REACTIONS (2)
  - Liver function test increased [Recovered/Resolved with Sequelae]
  - Hepatitis E [Recovered/Resolved]

NARRATIVE: CASE EVENT DATE: 20250114
